FAERS Safety Report 6025515-4 (Version None)
Quarter: 2008Q4

REPORT INFORMATION
  Report Type: 
  Country: None (occurrence: None)
  Receive Date: 20081231
  Receipt Date: 20081219
  Transmission Date: 20090506
  Serious: Yes (Other)
  Sender: FDA-Public Use
  Company Number: GB-GENENTECH-274622

PATIENT
  Sex: Female

DRUGS (2)
  1. AVASTIN [Suspect]
     Indication: BREAST CANCER
     Dosage: UNK
     Route: 042
  2. VINORELBINE [Suspect]
     Indication: BREAST CANCER
     Dosage: UNK
     Route: 042

REACTIONS (1)
  - INJECTION SITE IRRITATION [None]
